FAERS Safety Report 5181258-0 (Version None)
Quarter: 2006Q4

REPORT INFORMATION
  Report Type: 
  Country: None (occurrence: None)
  Receive Date: 20061220
  Receipt Date: 20051121
  Transmission Date: 20070319
  Serious: Yes (Other)
  Sender: FDA-Public Use
  Company Number: US-GLAXOSMITHKLINE-A0583047A

PATIENT
  Age: 31 Year
  Sex: Male

DRUGS (1)
  1. COMMIT [Suspect]
     Dosage: 2MG UNKNOWN

REACTIONS (1)
  - DRUG ABUSER [None]
